FAERS Safety Report 22802986 (Version 5)
Quarter: 2023Q4

REPORT INFORMATION
  Report Type: Spontaneous
  Country: DE (occurrence: DE)
  Receive Date: 20230809
  Receipt Date: 20231221
  Transmission Date: 20240109
  Serious: Yes (Other)
  Sender: FDA-Public Use
  Company Number: DE-SANDOZ-SDZ2023DE010282

PATIENT
  Age: 72 Year

DRUGS (2)
  1. TRIAMCINOLONE [Suspect]
     Active Substance: TRIAMCINOLONE
     Indication: Pain
     Dosage: UNK
     Route: 008
  2. COMIRNATY (TOZINAMERAN) [Concomitant]
     Active Substance: TOZINAMERAN
     Indication: Product used for unknown indication
     Dosage: UNK
     Route: 065

REACTIONS (19)
  - Lipoma [Unknown]
  - Immune-mediated adverse reaction [Unknown]
  - Joint instability [Unknown]
  - Neuralgia [Unknown]
  - Granuloma [Unknown]
  - Condition aggravated [Unknown]
  - Bone marrow granuloma [Unknown]
  - Fat necrosis [Unknown]
  - Synovial cyst [Unknown]
  - Burning sensation [Unknown]
  - Delusion [Unknown]
  - Tarsal tunnel syndrome [Unknown]
  - Plantar fasciitis [Unknown]
  - Metatarsalgia [Unknown]
  - Nodule [Unknown]
  - Drug ineffective [Unknown]
  - Arthralgia [Unknown]
  - Limb discomfort [Unknown]
  - Fibrosis [Unknown]

NARRATIVE: CASE EVENT DATE: 20210701
